FAERS Safety Report 14157490 (Version 1)
Quarter: 2017Q4

REPORT INFORMATION
  Report Type: Spontaneous
  Country: US (occurrence: None)
  Receive Date: 20171102
  Receipt Date: 20171102
  Transmission Date: 20180321
  Serious: No
  Sender: FDA-Public Use
  Company Number: None

PATIENT

DRUGS (1)
  1. MYRBETRIQ [Suspect]
     Active Substance: MIRABEGRON

REACTIONS (5)
  - Vomiting [None]
  - Abdominal pain upper [None]
  - Swollen tongue [None]
  - Dysphagia [None]
  - Nausea [None]
